FAERS Safety Report 4307859-7 (Version None)
Quarter: 2004Q1

REPORT INFORMATION
  Report Type: 
  Country: None (occurrence: None)
  Receive Date: 20040226
  Receipt Date: 20030617
  Transmission Date: 20041129
  Serious: Yes (Hospitalization)
  Sender: FDA-Public Use
  Company Number: 2003158666US

PATIENT
  Age: 68 Year
  Sex: Female
  Weight: 57.6 kg

DRUGS (7)
  1. CELEBREX [Suspect]
     Dosage: 200 MG, QD, ORAL
     Route: 048
     Dates: start: 20011210, end: 20030224
  2. ZOLOFT [Concomitant]
  3. ZANTAC [Concomitant]
  4. ALDACTONE [Concomitant]
  5. TRIAZOLAM [Concomitant]
  6. HYDROCHLOROTHIAZIDE [Concomitant]
  7. TRIAMTERENE [Concomitant]

REACTIONS (2)
  - ABDOMINAL PAIN UPPER [None]
  - GASTRIC ULCER PERFORATION [None]
